FAERS Safety Report 6467385-6 (Version None)
Quarter: 2009Q4

REPORT INFORMATION
  Report Type: 
  Country: None (occurrence: None)
  Receive Date: 20091202
  Receipt Date: 20091125
  Transmission Date: 20100525
  Serious: Yes (Other)
  Sender: FDA-Public Use
  Company Number: A0832012A

PATIENT
  Age: 25 Year
  Sex: Female

DRUGS (4)
  1. LAMICTAL [Suspect]
     Indication: PARTIAL SEIZURES
     Dosage: 375MG TWICE PER DAY
     Route: 048
     Dates: start: 20010101
  2. FOLIC ACID [Concomitant]
  3. ALLERGY MEDICATION [Concomitant]
  4. IBUPROFEN [Concomitant]

REACTIONS (5)
  - AMNESIA [None]
  - COGNITIVE DISORDER [None]
  - CONVULSION [None]
  - SOMNOLENCE [None]
  - TREMOR [None]
